FAERS Safety Report 25105318 (Version 1)
Quarter: 2025Q1

REPORT INFORMATION
  Report Type: Spontaneous
  Country: US (occurrence: US)
  Receive Date: 20250321
  Receipt Date: 20250321
  Transmission Date: 20250408
  Serious: Yes (Life-Threatening, Hospitalization, Other)
  Sender: ELI LILLY AND COMPANY
  Company Number: US-ELI_LILLY_AND_COMPANY-US202503008490

PATIENT
  Age: 62 Year
  Sex: Female

DRUGS (11)
  1. BASAGLAR [Suspect]
     Active Substance: INSULIN GLARGINE
     Indication: Product used for unknown indication
     Route: 058
     Dates: end: 20250303
  2. BASAGLAR [Suspect]
     Active Substance: INSULIN GLARGINE
     Indication: Product used for unknown indication
     Route: 058
     Dates: end: 20250303
  3. BASAGLAR [Suspect]
     Active Substance: INSULIN GLARGINE
     Indication: Product used for unknown indication
     Route: 058
     Dates: end: 20250303
  4. BASAGLAR [Suspect]
     Active Substance: INSULIN GLARGINE
     Indication: Product used for unknown indication
     Route: 058
     Dates: end: 20250303
  5. BASAGLAR [Suspect]
     Active Substance: INSULIN GLARGINE
     Indication: Product used for unknown indication
     Route: 058
     Dates: end: 20250303
  6. BASAGLAR [Suspect]
     Active Substance: INSULIN GLARGINE
     Route: 058
     Dates: end: 20250303
  7. BASAGLAR [Suspect]
     Active Substance: INSULIN GLARGINE
     Route: 058
     Dates: end: 20250303
  8. BASAGLAR [Suspect]
     Active Substance: INSULIN GLARGINE
     Route: 058
     Dates: end: 20250303
  9. BASAGLAR [Suspect]
     Active Substance: INSULIN GLARGINE
     Route: 058
     Dates: end: 20250303
  10. BASAGLAR [Suspect]
     Active Substance: INSULIN GLARGINE
     Route: 058
     Dates: end: 20250303
  11. NOVOLOG [Concomitant]
     Active Substance: INSULIN ASPART
     Indication: Product used for unknown indication
     Route: 065

REACTIONS (6)
  - Cardiac arrest [Recovering/Resolving]
  - Blood glucose increased [Recovering/Resolving]
  - Brain neoplasm [Not Recovered/Not Resolved]
  - Vertigo [Not Recovered/Not Resolved]
  - Ataxia [Not Recovered/Not Resolved]
  - Blood glucose increased [Recovering/Resolving]

NARRATIVE: CASE EVENT DATE: 20120101
